FAERS Safety Report 9536460 (Version 2)
Quarter: 2013Q3

REPORT INFORMATION
  Report Type: Spontaneous
  Country: US (occurrence: US)
  Receive Date: 20130919
  Receipt Date: 20130926
  Transmission Date: 20140515
  Serious: No
  Sender: FDA-Public Use
  Company Number: US-NAPPMUNDI-USA-2013-0106363

PATIENT
  Sex: Male

DRUGS (14)
  1. OXYCONTIN (NDA 22-272) [Suspect]
     Indication: BACK PAIN
     Dosage: 80 MG, QID
     Route: 048
  2. OXYCONTIN (NDA 22-272) [Suspect]
     Indication: PAIN IN EXTREMITY
     Dosage: 80 MG, 2 IN THE AM AND 1 IN PM
     Route: 048
  3. NORCO [Concomitant]
     Indication: PAIN
     Dosage: 10 MG, QID
  4. FUROSEMIDE [Concomitant]
     Indication: FLUID RETENTION
     Dosage: 20 MG, DAILY
  5. NAPROXEN [Concomitant]
     Indication: PAIN
     Dosage: 500 MG, BID
     Route: 048
  6. CITALOPRAM [Concomitant]
     Indication: DEPRESSION
     Dosage: 40 MG, DAILY
     Route: 048
  7. MIRAPEX [Concomitant]
     Indication: RESTLESS LEGS SYNDROME
     Dosage: 0.125 MG, DAILY
     Route: 048
  8. TAMSULOSIN [Concomitant]
     Dosage: 0.4 MG, HS
     Route: 048
  9. GABAPENTIN [Concomitant]
     Indication: NEURALGIA
     Dosage: 300 MG, BID
     Route: 048
  10. TIZANIDINE [Concomitant]
     Indication: MUSCLE RELAXANT THERAPY
     Dosage: 4 MG, BID
     Route: 048
  11. SIMVASTATIN [Concomitant]
     Indication: HYPERCHOLESTEROLAEMIA
     Dosage: 40 MG, DAILY
     Route: 048
  12. FLONASE [Concomitant]
     Indication: PRODUCT USED FOR UNKNOWN INDICATION
     Dosage: UNK, PRN
     Route: 055
  13. IMITREX                            /01044801/ [Concomitant]
     Indication: MIGRAINE
     Dosage: 20 MG, PRN
     Route: 055
  14. AMBIEN CR [Concomitant]
     Indication: SLEEP DISORDER
     Dosage: 12.5 MG, HS
     Route: 048

REACTIONS (10)
  - Drug withdrawal syndrome [Not Recovered/Not Resolved]
  - Intentional drug misuse [Unknown]
  - Back disorder [Unknown]
  - Drug ineffective [Recovered/Resolved]
  - Nausea [Recovered/Resolved]
  - Diarrhoea [Not Recovered/Not Resolved]
  - Hyperhidrosis [Unknown]
  - Tremor [Unknown]
  - Asthenia [Unknown]
  - Fatigue [Unknown]
